FAERS Safety Report 16046845 (Version 2)
Quarter: 2020Q4

REPORT INFORMATION
  Report Type: Spontaneous
  Country: US (occurrence: US)
  Receive Date: 20190307
  Receipt Date: 20201208
  Transmission Date: 20210113
  Serious: No
  Sender: FDA-Public Use
  Company Number: US-PFIZER INC-2019091929

PATIENT
  Age: 91 Year
  Sex: Female
  Weight: 77.11 kg

DRUGS (2)
  1. LYRICA [Suspect]
     Active Substance: PREGABALIN
     Indication: PARAESTHESIA
     Dosage: 50 MG, 2X/DAY
     Route: 048
     Dates: start: 201812
  2. LYRICA [Suspect]
     Active Substance: PREGABALIN
     Indication: MUSCLE SPASMS

REACTIONS (1)
  - Pain [Unknown]
